FAERS Safety Report 9423087 (Version 1)
Quarter: 2013Q3

REPORT INFORMATION
  Report Type: Spontaneous
  Country: US (occurrence: US)
  Receive Date: 20130726
  Receipt Date: 20130726
  Transmission Date: 20140515
  Serious: Yes (Other)
  Sender: FDA-Public Use
  Company Number: US-PFIZER INC-2013215458

PATIENT
  Age: 62 Year
  Sex: Male
  Weight: 90.7 kg

DRUGS (8)
  1. VFEND [Suspect]
     Indication: PROPHYLAXIS
     Dosage: 250 MG, 2X/DAY
     Dates: end: 20130719
  2. VORICONAZOLE [Suspect]
     Indication: PROPHYLAXIS
     Dosage: 200 MG, 1X/DAY
  3. PROGRAF [Concomitant]
     Dosage: UNK
  4. METOPROLOL [Concomitant]
     Indication: BLOOD PRESSURE ABNORMAL
     Dosage: UNK
  5. CALCIUM [Concomitant]
     Dosage: UNK
  6. SULFUR [Concomitant]
     Dosage: UNK
  7. GABAPENTIN [Concomitant]
     Dosage: 300 MG, 2X/DAY
  8. PREDNISONE [Concomitant]
     Dosage: 0.25 MG, DAILY

REACTIONS (8)
  - Pulmonary mycosis [Unknown]
  - Abasia [Unknown]
  - Hallucination [Recovered/Resolved]
  - Mouth haemorrhage [Unknown]
  - Drug ineffective [Unknown]
  - Erythema [Recovering/Resolving]
  - Pruritus [Not Recovered/Not Resolved]
  - Balance disorder [Unknown]
